FAERS Safety Report 4945227-5 (Version None)
Quarter: 2006Q1

REPORT INFORMATION
  Report Type: 
  Country: None (occurrence: None)
  Receive Date: 20060118
  Receipt Date: 20050128
  Transmission Date: 20060701
  Serious: Yes (Death)
  Sender: FDA-Public Use
  Company Number: US-JNJFOC-20050102765

PATIENT
  Age: 76 Year
  Sex: Female

DRUGS (1)
  1. DOXIL [Suspect]
     Indication: UTERINE CANCER
     Dosage: 40 MG/M2, 1 IN 1 MONTH, INTRAVENOUS
     Route: 042
     Dates: start: 20040601, end: 20040901

REACTIONS (2)
  - MALIGNANT NEOPLASM PROGRESSION [None]
  - UTERINE CANCER [None]
